FAERS Safety Report 12933158 (Version 1)
Quarter: 2016Q4

REPORT INFORMATION
  Report Type: Report from Study
  Country: None (occurrence: US)
  Receive Date: 20161111
  Receipt Date: 20161111
  Transmission Date: 20170207
  Serious: Yes (Hospitalization)
  Sender: FDA-Public Use
  Company Number: US-BIOVITRUM-2016US0820

PATIENT
  Age: 36 Year
  Sex: Male

DRUGS (2)
  1. KINERET [Suspect]
     Active Substance: ANAKINRA
     Indication: BEHCET^S SYNDROME
  2. KINERET [Suspect]
     Active Substance: ANAKINRA
     Indication: AMYLOIDOSIS
     Route: 058
     Dates: start: 20161001, end: 20161106

REACTIONS (8)
  - White blood cell count increased [Unknown]
  - Respiratory tract infection [Unknown]
  - Dehydration [Not Recovered/Not Resolved]
  - Heart rate increased [Unknown]
  - Fungal infection [Unknown]
  - Rash generalised [Not Recovered/Not Resolved]
  - Injection site erythema [Not Recovered/Not Resolved]
  - Hypertension [Unknown]

NARRATIVE: CASE EVENT DATE: 2016
